FAERS Safety Report 12399098 (Version 3)
Quarter: 2016Q3

REPORT INFORMATION
  Report Type: Spontaneous
  Country: US (occurrence: US)
  Receive Date: 20160524
  Receipt Date: 20160805
  Transmission Date: 20161109
  Serious: Yes (Other)
  Sender: FDA-Public Use
  Company Number: US-BAYER-2016-099068

PATIENT
  Age: 52 Year
  Sex: Female
  Weight: 64.4 kg

DRUGS (1)
  1. MIRENA [Suspect]
     Active Substance: LEVONORGESTREL
     Indication: CONTRACEPTION
     Dosage: 20 MCG/24HR, CONT
     Route: 015
     Dates: start: 2009, end: 20160503

REACTIONS (7)
  - Device difficult to use [None]
  - Insomnia [None]
  - Anxiety [None]
  - Embedded device [Recovered/Resolved]
  - Device use issue [None]
  - Procedural pain [None]
  - Stress [None]

NARRATIVE: CASE EVENT DATE: 2015
